FAERS Safety Report 7892159 (Version 3)
Quarter: 2014Q1

REPORT INFORMATION
  Report Type: Spontaneous
  Country: US (occurrence: US)
  Receive Date: 20110408
  Receipt Date: 20140324
  Transmission Date: 20141002
  Serious: Yes (Hospitalization, Other)
  Sender: FDA-Public Use
  Company Number: US-ROCHE-743354

PATIENT
  Age: 24 Year
  Sex: Female
  Weight: 95.3 kg

DRUGS (3)
  1. ACCUTANE [Suspect]
     Indication: ACNE CYSTIC
     Route: 065
     Dates: start: 20011129, end: 200201
  2. ACCUTANE [Suspect]
     Route: 065
  3. AMNESTEEM [Suspect]
     Indication: ACNE
     Route: 065
     Dates: start: 200311, end: 200403

REACTIONS (3)
  - Crohn^s disease [Unknown]
  - Inflammatory bowel disease [Unknown]
  - Stress [Unknown]
